FAERS Safety Report 13496360 (Version 1)
Quarter: 2017Q2

REPORT INFORMATION
  Report Type: Spontaneous
  Country: FI (occurrence: FI)
  Receive Date: 20170428
  Receipt Date: 20170428
  Transmission Date: 20170830
  Serious: Yes (Other)
  Sender: FDA-Public Use
  Company Number: FI-BAYER-2017-065643

PATIENT
  Age: 31 Year
  Sex: Female

DRUGS (1)
  1. MIRENA [Suspect]
     Active Substance: LEVONORGESTREL
     Indication: CONTRACEPTION
     Dosage: 20 MCG/24HR, CONT
     Route: 015
     Dates: start: 20130201, end: 20150901

REACTIONS (9)
  - Sensory disturbance [Recovered/Resolved]
  - Lhermitte^s sign [None]
  - Neuritic plaques [None]
  - Mycoplasma infection [None]
  - Cough [None]
  - Asthenia [None]
  - Infection susceptibility increased [None]
  - Cranial nerve disorder [None]
  - Central nervous system inflammation [Recovered/Resolved]

NARRATIVE: CASE EVENT DATE: 2013
